FAERS Safety Report 8797481 (Version 2)
Quarter: 2012Q4

REPORT INFORMATION
  Report Type: 
  Country: US (occurrence: US)
  Receive Date: 20120920
  Receipt Date: 20120921
  Transmission Date: 20130627
  Serious: No
  Sender: FDA-Public Use
  Company Number: US-009507513-1208USA001807

PATIENT
  Sex: Male

DRUGS (5)
  1. PEGINTRON [Suspect]
     Indication: HEPATITIS C
     Dosage: UNK
     Route: 058
     Dates: start: 20070502, end: 20080401
  2. PEGINTRON [Suspect]
     Dosage: UNK
     Route: 058
     Dates: start: 20120806
  3. REBETOL [Suspect]
     Indication: HEPATITIS C
     Dosage: UNK
     Route: 048
     Dates: start: 20070502, end: 20080401
  4. REBETOL [Suspect]
     Dosage: UNK
     Route: 048
     Dates: start: 20120806
  5. VICTRELIS [Suspect]
     Indication: HEPATITIS C
     Dosage: UNK
     Route: 048
     Dates: start: 20120903

REACTIONS (16)
  - Cold sweat [Unknown]
  - Influenza [Unknown]
  - Burning sensation [Unknown]
  - Chills [Unknown]
  - Drug ineffective [Unknown]
  - Platelet count decreased [Unknown]
  - White blood cell count decreased [Unknown]
  - Headache [Unknown]
  - Fatigue [Unknown]
  - Malaise [Unknown]
  - Diarrhoea [Unknown]
  - Headache [Unknown]
  - Gait disturbance [Unknown]
  - Pyrexia [Unknown]
  - Dyspnoea [Unknown]
  - Abdominal discomfort [Unknown]
